FAERS Safety Report 7141533-7 (Version None)
Quarter: 2010Q4

REPORT INFORMATION
  Report Type: 
  Country: None (occurrence: None)
  Receive Date: 20101202
  Receipt Date: 20101202
  Transmission Date: 20110411
  Serious: Yes (Life-Threatening, Hospitalization, Disabling, Other)
  Sender: FDA-Public Use
  Company Number: None

PATIENT
  Age: 82 Year
  Sex: Male
  Weight: 68.9467 kg

DRUGS (1)
  1. EFFIENT [Suspect]
     Indication: ANTICOAGULANT THERAPY
     Dosage: 10MG DAILY ORAL
     Route: 048
     Dates: start: 20100901, end: 20101110

REACTIONS (1)
  - TRANSIENT ISCHAEMIC ATTACK [None]
